FAERS Safety Report 6124210-0 (Version None)
Quarter: 2009Q1

REPORT INFORMATION
  Report Type: 
  Country: None (occurrence: None)
  Receive Date: 20090319
  Receipt Date: 20090313
  Transmission Date: 20090719
  Serious: Yes (Death, Hospitalization)
  Sender: FDA-Public Use
  Company Number: IN-ELI_LILLY_AND_COMPANY-IN200903003742

PATIENT
  Age: 65 Year
  Sex: Female

DRUGS (3)
  1. XIGRIS [Suspect]
     Indication: MULTI-ORGAN FAILURE
     Dosage: UNK, UNK
     Route: 042
  2. ANTIBIOTICS [Concomitant]
  3. DOPAMINE HCL [Concomitant]

REACTIONS (4)
  - HAEMORRHAGE [None]
  - HYPOTENSION [None]
  - MULTI-ORGAN FAILURE [None]
  - SEPSIS [None]
